FAERS Safety Report 15363950 (Version 1)
Quarter: 2018Q3

REPORT INFORMATION
  Report Type: Spontaneous
  Country: US (occurrence: US)
  Receive Date: 20180831
  Receipt Date: 20180831
  Transmission Date: 20181010
  Serious: Yes (Hospitalization)
  Sender: FDA-Public Use
  Company Number: None

PATIENT
  Age: 57 Year
  Sex: Male

DRUGS (2)
  1. CHOLESTYRAM POW [Concomitant]
  2. OCTREOTIDE 200MCG/ML MDV [Suspect]
     Active Substance: OCTREOTIDE
     Route: 058

REACTIONS (1)
  - Hospitalisation [None]
